FAERS Safety Report 7427342-X (Version None)
Quarter: 2011Q2

REPORT INFORMATION
  Report Type: 
  Country: None (occurrence: None)
  Receive Date: 20110420
  Receipt Date: 20110413
  Transmission Date: 20111010
  Serious: Yes (Other)
  Sender: FDA-Public Use
  Company Number: PHHY2011JP20122

PATIENT
  Age: 20 Year
  Sex: Male

DRUGS (10)
  1. PREDNISOLONE [Concomitant]
     Indication: ENGRAFTMENT SYNDROME
     Dosage: 1 MG/KG,
     Dates: start: 20100101
  2. GANCICLOVIR [Concomitant]
     Dosage: UNK
     Dates: start: 20100101
  3. CZOP [Concomitant]
  4. IMMUNOSUPPRESSANTS [Concomitant]
  5. GENINAX [Concomitant]
  6. ZITHROMAX [Concomitant]
  7. SANDIMMUNE [Suspect]
     Indication: CORD BLOOD TRANSPLANT THERAPY
     Dosage: 150 MG, UNK
     Route: 042
     Dates: start: 20091212, end: 20100128
  8. CYCLOPHOSPHAMIDE [Concomitant]
     Indication: CORD BLOOD TRANSPLANT THERAPY
     Dosage: UNK
  9. NEORAL [Suspect]
     Indication: CORD BLOOD TRANSPLANT THERAPY
     Dosage: 200 MG, UNK
     Route: 048
     Dates: start: 20100129
  10. BUSULFAN [Concomitant]
     Indication: CORD BLOOD TRANSPLANT THERAPY
     Dosage: UNK

REACTIONS (14)
  - PYREXIA [None]
  - WEIGHT INCREASED [None]
  - RENAL DISORDER [None]
  - SERUM FERRITIN INCREASED [None]
  - PRODUCTIVE COUGH [None]
  - VIRAL INFECTION [None]
  - RASH [None]
  - HISTIOCYTOSIS HAEMATOPHAGIC [None]
  - DIFFUSE PANBRONCHIOLITIS [None]
  - HYPOXIA [None]
  - ERYTHEMA [None]
  - BRONCHITIS [None]
  - PNEUMONIA FUNGAL [None]
  - ENGRAFTMENT SYNDROME [None]
